FAERS Safety Report 11909746 (Version 1)
Quarter: 2016Q1

REPORT INFORMATION
  Report Type: Spontaneous
  Country: US (occurrence: None)
  Receive Date: 20160111
  Receipt Date: 20160111
  Transmission Date: 20160526
  Serious: No
  Sender: FDA-Public Use
  Company Number: None

PATIENT
  Age: 33 Year
  Sex: Female
  Weight: 68.04 kg

DRUGS (3)
  1. IBUPROFEN. [Concomitant]
     Active Substance: IBUPROFEN
  2. MICRONOR [Suspect]
     Active Substance: NORETHINDRONE
  3. MICRONOR [Concomitant]
     Active Substance: NORETHINDRONE

REACTIONS (2)
  - Suppressed lactation [None]
  - Drug ineffective [None]

NARRATIVE: CASE EVENT DATE: 20130328
